FAERS Safety Report 17436948 (Version 1)
Quarter: 2020Q1

REPORT INFORMATION
  Report Type: Spontaneous
  Country: ES (occurrence: ES)
  Receive Date: 20200219
  Receipt Date: 20200219
  Transmission Date: 20200409
  Serious: Yes (Other)
  Sender: FDA-Public Use
  Company Number: ES-SA-2020SA039651

PATIENT
  Sex: Female
  Weight: 78 kg

DRUGS (3)
  1. LANTUS [Suspect]
     Active Substance: INSULIN GLARGINE
     Indication: TYPE 1 DIABETES MELLITUS
     Route: 058
  2. APIDRA [Suspect]
     Active Substance: INSULIN GLULISINE
     Indication: TYPE 1 DIABETES MELLITUS
     Dosage: AS INDICATED
     Route: 058
     Dates: start: 2013
  3. TRESIBA [Concomitant]
     Active Substance: INSULIN DEGLUDEC
     Indication: TYPE 1 DIABETES MELLITUS
     Dosage: UNK
     Route: 058

REACTIONS (10)
  - Diabetic metabolic decompensation [Recovering/Resolving]
  - Hyperglycaemia [Recovered/Resolved]
  - Nervousness [Unknown]
  - Photopsia [Recovered/Resolved]
  - Feeling abnormal [Recovered/Resolved]
  - Therapeutic product ineffective [Recovering/Resolving]
  - Hypoglycaemia [Recovered/Resolved]
  - Glycosylated haemoglobin increased [Recovering/Resolving]
  - Diabetes mellitus inadequate control [Recovering/Resolving]
  - Catarrh [Unknown]
